FAERS Safety Report 9458115 (Version 1)
Quarter: 2013Q3

REPORT INFORMATION
  Report Type: Spontaneous
  Country: GB (occurrence: GB)
  Receive Date: 20130814
  Receipt Date: 20130814
  Transmission Date: 20140515
  Serious: Yes (Other)
  Sender: FDA-Public Use
  Company Number: GB-ROCHE-1227072

PATIENT
  Sex: Female

DRUGS (1)
  1. HERCEPTIN [Suspect]
     Indication: PRODUCT USED FOR UNKNOWN INDICATION
     Dosage: CYCLE 10
     Route: 065

REACTIONS (12)
  - Chest pain [Unknown]
  - Pain [Unknown]
  - Gingival pain [Unknown]
  - Asthenia [Unknown]
  - Nausea [Recovering/Resolving]
  - Dyspnoea [Unknown]
  - Rash erythematous [Recovered/Resolved]
  - Chest pain [Recovering/Resolving]
  - Hypoaesthesia [Recovering/Resolving]
  - Diarrhoea [Recovering/Resolving]
  - Vomiting [Recovering/Resolving]
  - Asthenia [Recovering/Resolving]
